FAERS Safety Report 8529909-4 (Version None)
Quarter: 2012Q3

REPORT INFORMATION
  Report Type: 
  Country: None (occurrence: None)
  Receive Date: 20120723
  Receipt Date: 20120711
  Transmission Date: 20120928
  Serious: Yes (Disabling)
  Sender: FDA-Public Use
  Company Number: US-GENZYME-POMP-1002319

PATIENT
  Sex: Female

DRUGS (1)
  1. LUMIZYME [Suspect]
     Indication: GLYCOGEN STORAGE DISEASE TYPE II
     Dosage: UNK
     Route: 042
     Dates: start: 20100101

REACTIONS (2)
  - FORCED EXPIRATORY VOLUME DECREASED [None]
  - PULMONARY FUNCTION TEST DECREASED [None]
